FAERS Safety Report 12896923 (Version 1)
Quarter: 2016Q4

REPORT INFORMATION
  Report Type: Spontaneous
  Country: US (occurrence: US)
  Receive Date: 20161031
  Receipt Date: 20161031
  Transmission Date: 20170207
  Serious: No
  Sender: FDA-Public Use
  Company Number: US-PFIZER INC-2016501350

PATIENT
  Age: 57 Year
  Sex: Male
  Weight: 79.38 kg

DRUGS (1)
  1. NEURONTIN [Suspect]
     Active Substance: GABAPENTIN
     Indication: NEURALGIA
     Dosage: 100 MG, CAPSULE, THREE TIMES A DAY
     Route: 048
     Dates: start: 2016, end: 201610

REACTIONS (1)
  - Drug ineffective for unapproved indication [Unknown]
